FAERS Safety Report 8851889 (Version 2)
Quarter: 2013Q1

REPORT INFORMATION
  Report Type: Spontaneous
  Country: GB (occurrence: None)
  Receive Date: 20121017
  Receipt Date: 20130214
  Transmission Date: 20140127
  Serious: Yes (Life-Threatening, Hospitalization, Disabling)
  Sender: FDA-Public Use
  Company Number: AUR-APL-2012-04329

PATIENT
  Age: 69 Year
  Sex: Female
  Weight: 76.2 kg

DRUGS (1)
  1. NAPROXEN (NAPROXEN) [Suspect]
     Indication: ARTHRALGIA
     Dosage: 1000 MG
     Route: 048
     Dates: start: 201201, end: 20120909

REACTIONS (3)
  - Subarachnoid haemorrhage [None]
  - Intracranial aneurysm [None]
  - Medication error [None]
